FAERS Safety Report 10962502 (Version 1)
Quarter: 2015Q1

REPORT INFORMATION
  Report Type: Spontaneous
  Country: US (occurrence: US)
  Receive Date: 20150327
  Receipt Date: 20150327
  Transmission Date: 20150721
  Serious: No
  Sender: FDA-Public Use
  Company Number: US-GALDERMA-US14003266

PATIENT
  Age: 70 Year
  Sex: Female

DRUGS (5)
  1. CLOBEX [Suspect]
     Active Substance: CLOBETASOL PROPIONATE
     Indication: PRURITUS
     Dosage: 0.05%
     Route: 061
     Dates: start: 2010, end: 20140828
  2. UNKNOWN CREAM RINSE [Concomitant]
     Route: 061
  3. CLOBEX [Suspect]
     Active Substance: CLOBETASOL PROPIONATE
     Indication: PRURITUS
     Dosage: 0.05%
     Route: 061
     Dates: start: 2010, end: 20140828
  4. UNKNOWN DANDRUFF SHAMPOO [Concomitant]
     Indication: PRURITUS
     Route: 061
  5. UNKNOWN HAIR CONDITIONER [Concomitant]
     Indication: THERAPEUTIC SKIN CARE TOPICAL
     Route: 061

REACTIONS (4)
  - Product use issue [Recovered/Resolved]
  - Skin burning sensation [Recovered/Resolved]
  - Intentional product use issue [Recovered/Resolved]
  - Expired product administered [Recovered/Resolved]

NARRATIVE: CASE EVENT DATE: 2010
